FAERS Safety Report 6113783-X (Version None)
Quarter: 2009Q1

REPORT INFORMATION
  Report Type: 
  Country: None (occurrence: None)
  Receive Date: 20090312
  Receipt Date: 20090310
  Transmission Date: 20090719
  Serious: No
  Sender: FDA-Public Use
  Company Number: US-B.I. PHARMACEUTICALS,INC./RIDGEFIELD-2008-BP-19023BP

PATIENT
  Sex: Female

DRUGS (5)
  1. SPIRIVA [Suspect]
     Indication: EMPHYSEMA
     Dosage: 18MCG
     Route: 055
  2. ASMANEX TWISTHALER [Concomitant]
  3. MAXAIR [Concomitant]
  4. OXYGEN [Concomitant]
  5. 6-7 PRESCRIPTION DRUGS [Concomitant]

REACTIONS (1)
  - CHEST DISCOMFORT [None]
